FAERS Safety Report 4867380-4 (Version None)
Quarter: 2005Q4

REPORT INFORMATION
  Report Type: 
  Country: None (occurrence: None)
  Receive Date: 20051228
  Receipt Date: 20051219
  Transmission Date: 20060501
  Serious: Yes (Other)
  Sender: FDA-Public Use
  Company Number: AU-AVENTIS-200521256GDDC

PATIENT
  Sex: Female

DRUGS (1)
  1. TAXOTERE [Suspect]

REACTIONS (3)
  - AKINESIA [None]
  - PARALYSIS FLACCID [None]
  - PARAPLEGIA [None]
